FAERS Safety Report 21291170 (Version 1)
Quarter: 2022Q3

REPORT INFORMATION
  Report Type: Spontaneous
  Country: US (occurrence: US)
  Receive Date: 20220903
  Receipt Date: 20220903
  Transmission Date: 20221026
  Serious: No
  Sender: FDA-Public Use
  Company Number: US-drreddys-SPO/USA/22/0153678

PATIENT
  Sex: Female

DRUGS (2)
  1. NUPERCAINAL [Suspect]
     Active Substance: DIBUCAINE
     Indication: Acne
  2. NUPERCAINAL [Suspect]
     Active Substance: DIBUCAINE
     Indication: Injury

REACTIONS (1)
  - Product use in unapproved indication [Unknown]
